FAERS Safety Report 8697859 (Version 2)
Quarter: 2013Q4

REPORT INFORMATION
  Report Type: Spontaneous
  Country: US (occurrence: US)
  Receive Date: 20120801
  Receipt Date: 20131106
  Transmission Date: 20140711
  Serious: Yes (Hospitalization, Other)
  Sender: FDA-Public Use
  Company Number: US-009507513-1207USA010540

PATIENT
  Age: 54 Year
  Sex: Female

DRUGS (7)
  1. ZOCOR [Suspect]
     Dosage: 20 MG, UNK
  2. RAMIPRIL [Suspect]
     Dosage: UNK, PRN
  3. LIPITOR [Suspect]
     Dosage: 10 MG, QPM
  4. LIPITOR [Suspect]
     Dosage: 20 MG, QPM
  5. DUACT [Concomitant]
  6. NEXIUM [Concomitant]
     Dosage: UNK, PRN
  7. HYZAAR [Concomitant]
     Dosage: UNK

REACTIONS (26)
  - Cardiac disorder [Unknown]
  - Pneumonia [Unknown]
  - Rhinitis allergic [Unknown]
  - Toxicity to various agents [Unknown]
  - Cholangitis [Unknown]
  - Fatigue [Unknown]
  - Chest pain [Unknown]
  - Synovial rupture [Unknown]
  - C-reactive protein [Unknown]
  - Amylase increased [Unknown]
  - Hepatic enzyme increased [Unknown]
  - Abdominal pain upper [Unknown]
  - Diaphragmatic disorder [Unknown]
  - White blood cell count increased [Unknown]
  - Thymus disorder [Unknown]
  - Lymph node pain [Unknown]
  - Musculoskeletal pain [Unknown]
  - Hypertension [Unknown]
  - Sinusitis [Unknown]
  - Abdominal pain [Unknown]
  - Vomiting [Unknown]
  - Muscle spasms [Unknown]
  - Headache [Unknown]
  - Hepatic steatosis [Unknown]
  - Constipation [Unknown]
  - Blood cholesterol increased [Unknown]
